FAERS Safety Report 4728170-6 (Version None)
Quarter: 2005Q3

REPORT INFORMATION
  Report Type: 
  Country: None (occurrence: None)
  Receive Date: 20050728
  Receipt Date: 20050728
  Transmission Date: 20060218
  Serious: Yes (Hospitalization, Disabling)
  Sender: FDA-Public Use
  Company Number: None

PATIENT
  Sex: Female
  Weight: 48.5349 kg

DRUGS (8)
  1. ACTONEL [Suspect]
     Indication: OSTEOPOROSIS
     Dosage: 1 TABLET ONCE WEEKLY
     Dates: start: 20040502, end: 20040711
  2. TRIEST (COMPOUNDED TRIPLE ESTROGEN COMBINATION OF ESTRONE, ESTRADIOL, [Concomitant]
  3. PROGESTERONE [Concomitant]
  4. MULTI-VITAMIN [Concomitant]
  5. VITAMIN E [Concomitant]
  6. Q-GEL [Concomitant]
  7. KYO-GREEN [Concomitant]
  8. CENTRAL FATTY ACID COMPLEX [Concomitant]

REACTIONS (10)
  - BILIRUBIN URINE [None]
  - CHROMATURIA [None]
  - DISEASE PROGRESSION [None]
  - DRUG INEFFECTIVE [None]
  - HAEMOGLOBIN DECREASED [None]
  - HAEMORRHAGE [None]
  - MYALGIA [None]
  - NON-HODGKIN'S LYMPHOMA [None]
  - STRESS [None]
  - WALDENSTROM'S MACROGLOBULINAEMIA [None]
